FAERS Safety Report 5896888-8 (Version None)
Quarter: 2008Q3

REPORT INFORMATION
  Report Type: 
  Country: None (occurrence: None)
  Receive Date: 20080924
  Receipt Date: 20071108
  Transmission Date: 20090109
  Serious: No
  Sender: FDA-Public Use
  Company Number: US-BAYER-200714389BWH

PATIENT
  Sex: Male

DRUGS (5)
  1. AVELOX [Suspect]
     Indication: RESPIRATORY DISORDER
     Dosage: TOTAL DAILY DOSE: 400 MG  UNIT DOSE: 400 MG
     Route: 048
  2. SYNTHROID [Concomitant]
  3. WELLBUTRIN [Concomitant]
  4. ZOLOFT [Concomitant]
  5. PREDNISONE [Concomitant]

REACTIONS (1)
  - PRURITUS GENERALISED [None]
